FAERS Safety Report 9209420 (Version 2)
Quarter: 2013Q2

REPORT INFORMATION
  Report Type: Spontaneous
  Country: US (occurrence: US)
  Receive Date: 20130404
  Receipt Date: 20130409
  Transmission Date: 20140414
  Serious: Yes (Hospitalization, Other)
  Sender: FDA-Public Use
  Company Number: US-PFIZER INC-2012209104

PATIENT
  Age: 46 Year
  Sex: Female
  Weight: 100 kg

DRUGS (23)
  1. LYRICA [Suspect]
     Indication: DIABETIC NEUROPATHY
     Dosage: 100 MG/DAY
     Dates: start: 2011
  2. EFFEXOR XR [Suspect]
     Dosage: 150 MG/DAY
  3. PROTONIX [Suspect]
     Dosage: 40 MG, 2X/DAY
  4. ACCUPRIL [Concomitant]
     Indication: HYPERTENSION
     Dosage: 10 MG, 4X/DAY
     Route: 048
  5. ACCUPRIL [Concomitant]
     Dosage: 20 MG, 4X/DAY
     Route: 048
  6. ACCUPRIL [Concomitant]
     Dosage: 20 MG/DAY
     Route: 048
  7. COREG [Concomitant]
     Indication: HYPERTENSION
     Dosage: 25 MG, 2X/DAY
  8. LASIX [Concomitant]
     Indication: HYPERTENSION
     Dosage: 40 MG/DAY
  9. ISOSORBIDE MONONITRATE [Concomitant]
     Indication: HYPERTENSION
     Dosage: 90 MG, 2X/DAY
  10. KCL [Concomitant]
  11. ACTIGALL [Concomitant]
  12. DEPO-PROVERA [Concomitant]
  13. TOPROL XL [Concomitant]
  14. ACTOS [Concomitant]
  15. NORVASC [Concomitant]
  16. XANAX [Concomitant]
  17. BENTYL [Concomitant]
  18. OXYCODONE [Concomitant]
  19. TOPAMAX [Concomitant]
  20. CRESTOR [Concomitant]
  21. LANTUS [Concomitant]
  22. NOVOLOG [Concomitant]
  23. RELPAX [Concomitant]

REACTIONS (2)
  - Cardiac failure congestive [Recovered/Resolved]
  - Anaemia [Not Recovered/Not Resolved]
